FAERS Safety Report 24568928 (Version 2)
Quarter: 2024Q4

REPORT INFORMATION
  Report Type: Spontaneous
  Country: BR (occurrence: BR)
  Receive Date: 20241031
  Receipt Date: 20241114
  Transmission Date: 20250114
  Serious: Yes (Death, Hospitalization, Other)
  Sender: ELI LILLY AND COMPANY
  Company Number: BR-ELI_LILLY_AND_COMPANY-BR202410019156

PATIENT
  Age: 56 Year
  Sex: Male
  Weight: 115 kg

DRUGS (5)
  1. PIRTOBRUTINIB [Suspect]
     Active Substance: PIRTOBRUTINIB
     Indication: Mantle cell lymphoma
     Dosage: UNK UNK, UNKNOWN
     Route: 048
  2. CIPROFLOXACIN [Concomitant]
     Active Substance: CIPROFLOXACIN
     Indication: Product used for unknown indication
  3. ONDANSETRON [Concomitant]
     Active Substance: ONDANSETRON
     Indication: Product used for unknown indication
  4. DIMENHYDRINATE [Concomitant]
     Active Substance: DIMENHYDRINATE
     Indication: Product used for unknown indication
  5. PANTOPRAZOLE [Concomitant]
     Active Substance: PANTOPRAZOLE
     Indication: Product used for unknown indication

REACTIONS (14)
  - Death [Fatal]
  - Myocardial infarction [Fatal]
  - Vomiting [Unknown]
  - White blood cell count increased [Unknown]
  - Embolism [Unknown]
  - Blood creatinine increased [Unknown]
  - Tumour lysis syndrome [Unknown]
  - Malignant neoplasm progression [Unknown]
  - Nausea [Unknown]
  - Pyrexia [Unknown]
  - Hyperhidrosis [Unknown]
  - Chest pain [Unknown]
  - Dyspnoea [Unknown]
  - Peripheral swelling [Unknown]
